FAERS Safety Report 9969555 (Version 2)
Quarter: 2016Q1

REPORT INFORMATION
  Report Type: Report from Study
  Country: CA (occurrence: CA)
  Receive Date: 20140306
  Receipt Date: 20160211
  Transmission Date: 20160526
  Serious: Yes (Other)
  Sender: FDA-Public Use
  Company Number: CA-BRISTOL-MYERS SQUIBB COMPANY-20298782

PATIENT
  Age: 37 Year
  Sex: Female
  Weight: 63 kg

DRUGS (3)
  1. TELBIVUDINE [Suspect]
     Active Substance: TELBIVUDINE
     Indication: HEPATITIS B
     Dosage: 600 MG, QD
     Route: 048
     Dates: start: 20070912, end: 20090111
  2. ENTECAVIR. [Suspect]
     Active Substance: ENTECAVIR
     Indication: HEPATITIS B
     Dosage: .5 MG, QD
     Route: 048
     Dates: start: 20090112, end: 20110731
  3. TENOFOVIR [Suspect]
     Active Substance: TENOFOVIR
     Indication: HEPATITIS B
     Dosage: 300 MG, QD
     Route: 048
     Dates: start: 20110801

REACTIONS (6)
  - Gestational diabetes [Unknown]
  - Caesarean section [Unknown]
  - Maternal exposure before pregnancy [Recovered/Resolved]
  - Normal newborn [Unknown]
  - Hypertension [Unknown]
  - Breast feeding [Unknown]

NARRATIVE: CASE EVENT DATE: 20131221
